FAERS Safety Report 10051075 (Version 2)
Quarter: 2014Q2

REPORT INFORMATION
  Report Type: Spontaneous
  Country: US (occurrence: US)
  Receive Date: 20140401
  Receipt Date: 20140401
  Transmission Date: 20141212
  Serious: No
  Sender: FDA-Public Use
  Company Number: US-ASTRAZENECA-2011SE33447

PATIENT
  Age: 52 Year
  Sex: Female
  Weight: 105.7 kg

DRUGS (3)
  1. NEXIUM [Suspect]
     Indication: GASTROOESOPHAGEAL REFLUX DISEASE
     Route: 048
     Dates: start: 2001
  2. DICYCLOMINE [Concomitant]
     Indication: IRRITABLE BOWEL SYNDROME
  3. FEXOFENADINE HCL [Concomitant]

REACTIONS (20)
  - Chest pain [Unknown]
  - Inflammation [Unknown]
  - Neck pain [Unknown]
  - Musculoskeletal pain [Unknown]
  - Mobility decreased [Unknown]
  - Irritable bowel syndrome [Unknown]
  - Asthenia [Unknown]
  - Discomfort [Unknown]
  - Thermal burn [Unknown]
  - Blister [Unknown]
  - Vomiting [Unknown]
  - Gastroenteritis viral [Unknown]
  - Weight decreased [Unknown]
  - Weight increased [Unknown]
  - Fall [Unknown]
  - Limb injury [Unknown]
  - Posture abnormal [Unknown]
  - Gait disturbance [Unknown]
  - Chondropathy [Unknown]
  - Joint effusion [Unknown]
